FAERS Safety Report 7352750-5 (Version None)
Quarter: 2011Q1

REPORT INFORMATION
  Report Type: 
  Country: None (occurrence: None)
  Receive Date: 20110315
  Receipt Date: 20110304
  Transmission Date: 20110831
  Serious: Yes (Hospitalization)
  Sender: FDA-Public Use
  Company Number: US-ELI_LILLY_AND_COMPANY-US201103001652

PATIENT
  Age: 30 Year
  Sex: Male
  Weight: 78.5 kg

DRUGS (6)
  1. ZYPREXA [Suspect]
     Dosage: UNK, UNKNOWN
     Route: 048
  2. GEODON [Concomitant]
     Indication: SCHIZOAFFECTIVE DISORDER BIPOLAR TYPE
     Dosage: 20 MG, 2/D
     Route: 048
     Dates: start: 20100801
  3. GEODON [Concomitant]
     Dosage: 60 MG, DAILY (1/D)
     Route: 048
  4. GEODON [Concomitant]
     Dosage: 120 MG, DAILY (1/D)
  5. CYMBALTA [Suspect]
     Indication: SCHIZOAFFECTIVE DISORDER
     Dosage: UNK, UNKNOWN
     Route: 048
  6. DEPAKOTE [Concomitant]
     Indication: SCHIZOAFFECTIVE DISORDER
     Dosage: 1500 MG, DAILY (1/D)
     Route: 048

REACTIONS (8)
  - DRUG INTERACTION [None]
  - OFF LABEL USE [None]
  - HALLUCINATION [None]
  - DRUG INEFFECTIVE [None]
  - DELUSION [None]
  - INSOMNIA [None]
  - SOMNOLENCE [None]
  - SCHIZOAFFECTIVE DISORDER [None]
